FAERS Safety Report 8604261-4 (Version None)
Quarter: 2012Q3

REPORT INFORMATION
  Report Type: 
  Country: None (occurrence: None)
  Receive Date: 20120820
  Receipt Date: 20120807
  Transmission Date: 20120928
  Serious: Yes (Other)
  Sender: FDA-Public Use
  Company Number: JP-AMGEN-JPNSP2012050226

PATIENT
  Age: 60 Year
  Sex: Female

DRUGS (5)
  1. ARANESP [Suspect]
     Indication: NEPHROGENIC ANAEMIA
     Dosage: 10 MUG, QWK
     Route: 040
     Dates: start: 20110406, end: 20120606
  2. LASIX [Concomitant]
     Dosage: IN THE MORNING 2T (ON NON-DIALYSIS DAY)
     Route: 048
  3. CRESTOR [Concomitant]
     Dosage: 2.5 MG, QD
     Route: 048
  4. CALCIUM CARBONATE [Concomitant]
     Dosage: 1000 MG, BID
     Route: 048
  5. ALFAROL [Concomitant]
     Dosage: 0.25 MUG, QD
     Route: 048

REACTIONS (1)
  - HEPATIC FUNCTION ABNORMAL [None]
